FAERS Safety Report 5922801-0 (Version None)
Quarter: 2008Q4

REPORT INFORMATION
  Report Type: 
  Country: None (occurrence: None)
  Receive Date: 20081017
  Receipt Date: 20081014
  Transmission Date: 20090506
  Serious: No
  Sender: FDA-Public Use
  Company Number: US-B.I. PHARMACEUTICALS,INC./RIDGEFIELD-2008-BP-15836BP

PATIENT
  Sex: Male

DRUGS (1)
  1. ZANTAC 75 [Suspect]
     Indication: HYPERCHLORHYDRIA
     Route: 048
     Dates: start: 20081014

REACTIONS (3)
  - AGITATION [None]
  - MALAISE [None]
  - NERVOUSNESS [None]
